FAERS Safety Report 9267105 (Version 1)
Quarter: 2013Q2

REPORT INFORMATION
  Report Type: Spontaneous
  Country: KR (occurrence: KR)
  Receive Date: 20130502
  Receipt Date: 20130502
  Transmission Date: 20140414
  Serious: Yes (Hospitalization)
  Sender: FDA-Public Use
  Company Number: KR-JNJFOC-20130414579

PATIENT
  Sex: 0

DRUGS (1)
  1. TYLENOL SUSPENSION LIQUID [Suspect]
     Indication: PYREXIA
     Route: 048
     Dates: start: 2012

REACTIONS (4)
  - Convulsion [Unknown]
  - Vomiting [Unknown]
  - Diarrhoea [Unknown]
  - Malaise [None]
